FAERS Safety Report 4574186-2 (Version None)
Quarter: 2005Q1

REPORT INFORMATION
  Report Type: 
  Country: None (occurrence: None)
  Receive Date: 20050208
  Receipt Date: 20050202
  Transmission Date: 20050727
  Serious: Yes (Hospitalization, Other)
  Sender: FDA-Public Use
  Company Number: PHNU2005DE00774

PATIENT
  Sex: Female

DRUGS (13)
  1. CLOZARIL [Suspect]
     Indication: MAJOR DEPRESSION
     Dosage: 75 TO 100 MG/DAY
     Route: 048
     Dates: start: 20031011, end: 20031014
  2. CLOZARIL [Suspect]
     Dosage: 125 MG/DAY
     Route: 048
     Dates: start: 20031015, end: 20031021
  3. CLOZARIL [Suspect]
     Dosage: UNKNOWN
     Route: 048
     Dates: start: 20031022
  4. CLOZARIL [Suspect]
     Dosage: 12.5 TO 50 MG/DAY
     Route: 048
     Dates: start: 20031006, end: 20031010
  5. VENLAFAXINE HCL [Concomitant]
     Dosage: 150 MG/DAY
     Route: 048
     Dates: start: 20031016, end: 20031021
  6. VENLAFAXINE HCL [Concomitant]
     Dosage: 37.5 TO 75 MG/DAY
     Route: 048
     Dates: start: 20030317, end: 20031015
  7. VENLAFAXINE HCL [Concomitant]
     Dosage: UNKNOWN
     Route: 048
     Dates: start: 20031022
  8. STANGYL [Suspect]
     Dosage: UNKNOWN
     Route: 048
     Dates: start: 20030925, end: 20031020
  9. MICARDIS [Suspect]
     Indication: HYPERTENSION
     Dosage: UNKNOWN
     Route: 048
     Dates: end: 20031021
  10. LASIX [Suspect]
     Indication: DIURETIC THERAPY
     Dosage: 40 MG/DAY
     Route: 048
     Dates: start: 20031011, end: 20031013
  11. LASIX [Suspect]
     Dosage: 20 MG/DAY
     Route: 048
     Dates: start: 20031014, end: 20031021
  12. DELIX [Suspect]
     Indication: HYPERTENSION
     Dosage: 1.25 MG/DAY
     Route: 048
     Dates: start: 20031014, end: 20031018
  13. DELIX [Suspect]
     Dosage: 2.5 MG/DAY
     Route: 048
     Dates: start: 20031019, end: 20031021

REACTIONS (10)
  - ANGINA PECTORIS [None]
  - BLOOD PRESSURE DECREASED [None]
  - BLOOD PRESSURE INCREASED [None]
  - DIARRHOEA INFECTIOUS [None]
  - DRUG INTERACTION [None]
  - GASTROINTESTINAL INFECTION [None]
  - HYPERHIDROSIS [None]
  - LOSS OF CONSCIOUSNESS [None]
  - SYNCOPE [None]
  - TACHYCARDIA [None]
